FAERS Safety Report 8153275-X (Version None)
Quarter: 2012Q1

REPORT INFORMATION
  Report Type: 
  Country: None (occurrence: None)
  Receive Date: 20120215
  Receipt Date: 20120201
  Transmission Date: 20120608
  Serious: Yes (Other)
  Sender: FDA-Public Use
  Company Number: JPI-P-019512

PATIENT
  Age: 24 Year
  Sex: Female
  Weight: 61.2356 kg

DRUGS (4)
  1. LEVONORGESTREL [Concomitant]
  2. AMPHETAMINE AND DEXTROAMPHETAMINE SALTS [Concomitant]
  3. XYREM [Suspect]
     Indication: CATAPLEXY
     Dosage: ORAL ; 7.5 GM (3.75 GM,2 IN 1 D),ORAL
     Route: 048
     Dates: start: 20110101
  4. XYREM [Suspect]
     Indication: CATAPLEXY
     Dosage: ORAL ; 7.5 GM (3.75 GM,2 IN 1 D),ORAL
     Route: 048
     Dates: start: 20110601, end: 20110101

REACTIONS (9)
  - VOMITING [None]
  - DIARRHOEA [None]
  - ABDOMINAL DISTENSION [None]
  - OVARIAN CYST RUPTURED [None]
  - INFLUENZA LIKE ILLNESS [None]
  - NAUSEA [None]
  - ABNORMAL SLEEP-RELATED EVENT [None]
  - DIZZINESS [None]
  - ABDOMINAL PAIN [None]
